FAERS Safety Report 14001806 (Version 1)
Quarter: 2017Q3

REPORT INFORMATION
  Report Type: Spontaneous
  Country: FR (occurrence: FR)
  Receive Date: 20170922
  Receipt Date: 20170922
  Transmission Date: 20171128
  Serious: Yes (Other)
  Sender: FDA-Public Use
  Company Number: FR-MERCK KGAA-2027390

PATIENT
  Age: 62 Year
  Sex: Female

DRUGS (1)
  1. NOVOTHYROX [Suspect]
     Active Substance: LEVOTHYROXINE SODIUM
     Indication: PRODUCT USED FOR UNKNOWN INDICATION

REACTIONS (7)
  - Gastric ulcer [None]
  - Cardiac murmur [None]
  - Throat tightness [None]
  - Weight increased [None]
  - Sleep disorder [None]
  - Pharyngeal oedema [None]
  - Muscle spasms [None]

NARRATIVE: CASE EVENT DATE: 201704
